FAERS Safety Report 5500819-X (Version None)
Quarter: 2007Q4

REPORT INFORMATION
  Report Type: 
  Country: None (occurrence: None)
  Receive Date: 20071029
  Receipt Date: 20071025
  Transmission Date: 20080405
  Serious: Yes (Other)
  Sender: FDA-Public Use
  Company Number: B0474910A

PATIENT
  Age: 5 Year
  Sex: Female
  Weight: 22 kg

DRUGS (1)
  1. AMOXICILLIN [Suspect]
     Route: 048
     Dates: start: 20070511, end: 20070516

REACTIONS (3)
  - AGGRESSION [None]
  - EMOTIONAL DISORDER [None]
  - FATIGUE [None]
